FAERS Safety Report 12899945 (Version 2)
Quarter: 2016Q4

REPORT INFORMATION
  Report Type: Spontaneous
  Country: FR (occurrence: FR)
  Receive Date: 20161101
  Receipt Date: 20161219
  Transmission Date: 20170207
  Serious: Yes (Death)
  Sender: FDA-Public Use
  Company Number: FR-ELI_LILLY_AND_COMPANY-FR201610010109

PATIENT
  Age: 79 Year
  Sex: Male
  Weight: 83 kg

DRUGS (3)
  1. CARBOPLATIN. [Concomitant]
     Active Substance: CARBOPLATIN
     Indication: HEAD AND NECK CANCER
     Dosage: UNK UNK, OTHER
     Route: 065
  2. ERBITUX [Suspect]
     Active Substance: CETUXIMAB
     Indication: HEAD AND NECK CANCER
     Dosage: UNK UNK, WEEKLY (1/W)
     Route: 065
     Dates: start: 20160708, end: 20161212
  3. 5-FU                               /00098801/ [Concomitant]
     Active Substance: FLUOROURACIL
     Indication: HEAD AND NECK CANCER
     Dosage: UNK UNK, UNKNOWN
     Route: 065

REACTIONS (1)
  - Tumour haemorrhage [Fatal]

NARRATIVE: CASE EVENT DATE: 2016
